FAERS Safety Report 13817331 (Version 2)
Quarter: 2017Q4

REPORT INFORMATION
  Report Type: Spontaneous
  Country: ES (occurrence: ES)
  Receive Date: 20170731
  Receipt Date: 20171117
  Transmission Date: 20180320
  Serious: Yes (Other)
  Sender: FDA-Public Use
  Company Number: ES-BAYER-2017-143232

PATIENT
  Age: 67 Year
  Sex: Female

DRUGS (1)
  1. NEXAVAR [Suspect]
     Active Substance: SORAFENIB
     Indication: HEPATOCELLULAR CARCINOMA
     Dosage: UNK

REACTIONS (2)
  - Peripheral pulse decreased [Unknown]
  - Dry skin [Unknown]
